FAERS Safety Report 4392274-0 (Version None)
Quarter: 2004Q3

REPORT INFORMATION
  Report Type: 
  Country: None (occurrence: None)
  Receive Date: 20040702
  Receipt Date: 20040217
  Transmission Date: 20050211
  Serious: Yes (Other)
  Sender: FDA-Public Use
  Company Number: 2004UW02812

PATIENT
  Age: 61 Year
  Sex: Female
  Weight: 56.6996 kg

DRUGS (4)
  1. CRESTOR [Suspect]
     Indication: BLOOD CHOLESTEROL INCREASED
     Dates: start: 20040201
  2. TENORMIN [Concomitant]
  3. ASPIRIN [Concomitant]
  4. FOSAMAX [Concomitant]

REACTIONS (3)
  - ABNORMAL DREAMS [None]
  - ANXIETY [None]
  - SLEEP DISORDER [None]
